FAERS Safety Report 18254149 (Version 7)
Quarter: 2020Q4

REPORT INFORMATION
  Report Type: Report from Study
  Country: US (occurrence: US)
  Receive Date: 20200910
  Receipt Date: 20201126
  Transmission Date: 20210113
  Serious: No
  Sender: FDA-Public Use
  Company Number: US-BIOVITRUM-2020US4796

PATIENT
  Age: 52 Year
  Sex: Male

DRUGS (1)
  1. KINERET [Suspect]
     Active Substance: ANAKINRA
     Indication: URTICARIA
     Route: 058
     Dates: start: 20200901, end: 20201123

REACTIONS (11)
  - Injection site pain [Unknown]
  - Feeling cold [Unknown]
  - Pain [Unknown]
  - Limb mass [Unknown]
  - Injection site pruritus [Unknown]
  - Dizziness [Unknown]
  - Anxiety [Unknown]
  - Pruritus [Unknown]
  - Onychalgia [Unknown]
  - Pain in extremity [Unknown]
  - Off label use [Not Recovered/Not Resolved]

NARRATIVE: CASE EVENT DATE: 20200901
